FAERS Safety Report 4509339-2 (Version None)
Quarter: 2004Q4

REPORT INFORMATION
  Report Type: 
  Country: None (occurrence: None)
  Receive Date: 20041123
  Receipt Date: 20041118
  Transmission Date: 20050328
  Serious: Yes (Life-Threatening, Hospitalization, Disabling)
  Sender: FDA-Public Use
  Company Number: US-MERCK-0411USA03202

PATIENT
  Age: 74 Year
  Sex: Male

DRUGS (4)
  1. VIOXX [Suspect]
     Indication: ARTHRITIS
     Route: 048
     Dates: start: 20030101, end: 20040812
  2. NEURONTIN [Concomitant]
     Route: 065
  3. FUROSEMIDE [Concomitant]
     Route: 065
  4. CELEXA [Concomitant]
     Route: 065

REACTIONS (1)
  - CARDIAC FAILURE CONGESTIVE [None]
